FAERS Safety Report 8748604 (Version 3)
Quarter: 2012Q4

REPORT INFORMATION
  Report Type: 
  Country: US (occurrence: US)
  Receive Date: 20120827
  Receipt Date: 20121001
  Transmission Date: 20130627
  Serious: Yes (Other)
  Sender: FDA-Public Use
  Company Number: US-PFIZER INC-2012204924

PATIENT
  Age: 70 Year
  Sex: Female
  Weight: 68.03 kg

DRUGS (4)
  1. LATANOPROST [Suspect]
     Indication: GLAUCOMA
     Dosage: daily
     Route: 047
     Dates: start: 2011
  2. LATANOPROST [Suspect]
  3. LATANOPROST [Suspect]
     Dosage: UNK
  4. ENBREL [Concomitant]
     Indication: RHEUMATOID ARTHRITIS
     Dosage: 50 mg, once a week

REACTIONS (2)
  - Visual acuity reduced [Not Recovered/Not Resolved]
  - Poor quality drug administered [Unknown]
